FAERS Safety Report 9181812 (Version 1)
Quarter: 2013Q1

REPORT INFORMATION
  Report Type: Spontaneous
  Country: GB (occurrence: GB)
  Receive Date: 20130322
  Receipt Date: 20130322
  Transmission Date: 20140127
  Serious: Yes (Hospitalization)
  Sender: FDA-Public Use
  Company Number: GB-SANOFI-AVENTIS-2013SA026022

PATIENT
  Age: 67 Year
  Sex: Male

DRUGS (10)
  1. CLOPIDOGREL BISULFATE [Suspect]
     Indication: CEREBROVASCULAR ACCIDENT
     Route: 048
  2. ISOSORBIDE MONONITRATE [Concomitant]
  3. PERHEXILINE [Concomitant]
  4. RAMIPRIL [Concomitant]
     Dosage: 2.5MG/AM AND PM
  5. BISOPROLOL [Concomitant]
     Dosage: 5MG/ AM
  6. ASPIRIN [Concomitant]
  7. ATORVASTATIN [Concomitant]
  8. TRAMADOL [Concomitant]
  9. GLYCERYL TRINITRATE [Concomitant]
  10. AMLODIPINE [Concomitant]

REACTIONS (3)
  - Abdominal distension [Unknown]
  - Chromaturia [Unknown]
  - Gastrooesophageal reflux disease [Unknown]
